FAERS Safety Report 7474279-6 (Version None)
Quarter: 2011Q2

REPORT INFORMATION
  Report Type: 
  Country: None (occurrence: None)
  Receive Date: 20110511
  Receipt Date: 20110503
  Transmission Date: 20111010
  Serious: Yes (Other)
  Sender: FDA-Public Use
  Company Number: NL-AMGEN-NLDSP2011017894

PATIENT
  Age: 31 Year
  Sex: Female
  Weight: 68 kg

DRUGS (6)
  1. ENBREL [Suspect]
     Indication: RHEUMATOID ARTHRITIS
     Dosage: 50 MG, WEEKLY
     Dates: start: 20101209
  2. FRAGMIN [Suspect]
     Dosage: UNK
     Dates: end: 20110401
  3. FOLIC ACID [Concomitant]
     Dosage: UNK
  4. OMEPRAZOLE [Concomitant]
  5. MTX                                /00113801/ [Concomitant]
  6. INDOMETHACIN [Concomitant]

REACTIONS (2)
  - INJECTION SITE HAEMATOMA [None]
  - ARTHRODESIS [None]
